FAERS Safety Report 8065426-6 (Version None)
Quarter: 2012Q1

REPORT INFORMATION
  Report Type: 
  Country: None (occurrence: None)
  Receive Date: 20120124
  Receipt Date: 20120113
  Transmission Date: 20120608
  Serious: Yes (Hospitalization)
  Sender: FDA-Public Use
  Company Number: US-AMGEN-USASP2012002926

PATIENT
  Age: 65 Year
  Sex: Female

DRUGS (2)
  1. ENBREL [Suspect]
     Indication: RHEUMATOID ARTHRITIS
     Dosage: 50 MG, QWK
     Dates: start: 20011002
  2. METHOTREXATE [Concomitant]
     Dosage: UNK
     Dates: start: 20010101

REACTIONS (4)
  - HEADACHE [None]
  - ARTHRALGIA [None]
  - OSTEOARTHRITIS [None]
  - BURNING SENSATION [None]
